FAERS Safety Report 4641910-X (Version None)
Quarter: 2005Q2

REPORT INFORMATION
  Report Type: 
  Country: None (occurrence: None)
  Receive Date: 20050420
  Receipt Date: 20050405
  Transmission Date: 20051028
  Serious: Yes (Disabling, Other)
  Sender: FDA-Public Use
  Company Number: US_0504115080

PATIENT
  Age: 67 Year
  Sex: Male
  Weight: 92 kg

DRUGS (7)
  1. CIALIS [Suspect]
     Indication: ERECTILE DYSFUNCTION
     Dates: start: 20040801
  2. PLAVIX [Concomitant]
  3. LOTENSIN [Concomitant]
  4. LEVOXYL [Concomitant]
  5. NORVASC [Concomitant]
  6. KCL (POTASSIUM CHLORIDE) [Concomitant]
  7. SINGULAIR (MONTELUKAST) [Concomitant]

REACTIONS (1)
  - VISION BLURRED [None]
